FAERS Safety Report 9790509 (Version 2)
Quarter: 2013Q4

REPORT INFORMATION
  Report Type: Report from Study
  Country: AU (occurrence: AU)
  Receive Date: 20131231
  Receipt Date: 20131231
  Transmission Date: 20140711
  Serious: Yes (Death, Life-Threatening, Hospitalization, Other)
  Sender: FDA-Public Use
  Company Number: AU-MILLENNIUM PHARMACEUTICALS, INC.-2012-05583

PATIENT
  Sex: 0

DRUGS (27)
  1. VELCADE [Suspect]
     Indication: PLASMA CELL MYELOMA
     Dosage: 2.1 MG, UNK
     Route: 065
     Dates: start: 20120731, end: 20120830
  2. CYCLOPHOSPHAMIDE [Suspect]
     Indication: PLASMA CELL MYELOMA
     Dosage: 500 MG, UNK
     Route: 065
     Dates: start: 20120731, end: 20120903
  3. THALIDOMIDE [Suspect]
     Indication: PLASMA CELL MYELOMA
     Route: 065
  4. DEXAMETHASONE [Suspect]
     Indication: PLASMA CELL MYELOMA
     Route: 065
  5. PREDNISOLONE [Suspect]
     Indication: PLASMA CELL MYELOMA
     Dosage: UNK
     Route: 065
  6. OXYCONTIN [Concomitant]
     Indication: BONE PAIN
  7. RILUZOLE [Concomitant]
  8. NYSTATIN [Concomitant]
     Indication: PROPHYLAXIS
  9. FRUSEMIDE                          /00032601/ [Concomitant]
     Indication: RENAL FAILURE
  10. GLICLAZIDE [Concomitant]
     Indication: DIABETES MELLITUS
  11. VALACICLOVIR [Concomitant]
     Indication: ANTIVIRAL PROPHYLAXIS
     Dosage: UNK
     Dates: start: 20120731
  12. ALLOPURINOL [Concomitant]
     Indication: PROPHYLAXIS
     Dosage: UNK
     Dates: start: 20120731
  13. DAPSONE [Concomitant]
     Indication: PROPHYLAXIS
     Dosage: UNK
     Dates: start: 20120731
  14. ESOMEPRAZOLE [Concomitant]
     Indication: PROPHYLAXIS
     Dosage: UNK
     Dates: start: 20120731
  15. GRANISETRON [Concomitant]
     Indication: PROPHYLAXIS OF NAUSEA AND VOMITING
     Dosage: UNK
     Dates: start: 20120731
  16. DEXAMETHASONE [Concomitant]
     Indication: PLASMA CELL MYELOMA
     Dosage: UNK
     Dates: start: 20120727, end: 20120729
  17. CLEXANE [Concomitant]
     Indication: THROMBOSIS PROPHYLAXIS
     Dosage: UNK
     Dates: start: 20120727
  18. CLEXANE [Concomitant]
     Dosage: UNK
     Dates: start: 20120815
  19. SLOW-K [Concomitant]
     Indication: HYPOKALAEMIA
  20. PARACETAMOL [Concomitant]
     Indication: ARTHRITIS
  21. CHLORVESCENT [Concomitant]
     Dosage: UNK
     Dates: start: 20120816, end: 20120816
  22. AZITHROMYCIN [Concomitant]
     Indication: PNEUMONIA
  23. MOXIFLOXACIN [Concomitant]
     Indication: PNEUMONIA
  24. GRANULOCYTE COLONY-STIMULATING FACTOR NOS [Concomitant]
     Indication: PNEUMONIA
  25. HYDROCORTISONE [Concomitant]
     Indication: PNEUMONIA
  26. ATROVENT [Concomitant]
     Indication: PNEUMONIA
  27. CIPROFLOXACINE                     /00697201/ [Concomitant]
     Indication: PNEUMONIA

REACTIONS (3)
  - Subdural haemorrhage [Recovered/Resolved]
  - Left ventricular dysfunction [Recovered/Resolved]
  - Death [Fatal]
